FAERS Safety Report 6518063-6 (Version None)
Quarter: 2009Q4

REPORT INFORMATION
  Report Type: 
  Country: None (occurrence: None)
  Receive Date: 20091223
  Receipt Date: 20091223
  Transmission Date: 20100525
  Serious: No
  Sender: FDA-Public Use
  Company Number: None

PATIENT
  Sex: Female

DRUGS (2)
  1. COLD REMEDY NASAL GEL [Suspect]
     Indication: NASOPHARYNGITIS
     Dosage: THERAPY DATES: APX 2007-EARLY 2009
  2. COLD REMEDY GEL SWABS [Suspect]
     Indication: NASOPHARYNGITIS
     Dosage: THERAPY DATES: APX 2007-EARLY 2009

REACTIONS (4)
  - ANOSMIA [None]
  - BURNING SENSATION MUCOSAL [None]
  - DYSGEUSIA [None]
  - PRODUCT QUALITY ISSUE [None]
